FAERS Safety Report 11652900 (Version 3)
Quarter: 2015Q4

REPORT INFORMATION
  Report Type: Spontaneous
  Country: US (occurrence: US)
  Receive Date: 20151022
  Receipt Date: 20151027
  Transmission Date: 20160304
  Serious: Yes (Death)
  Sender: FDA-Public Use
  Company Number: PHEH2015US021202

PATIENT
  Age: 62 Year
  Sex: Male

DRUGS (1)
  1. PROMACTA [Suspect]
     Active Substance: ELTROMBOPAG OLAMINE
     Indication: HAEMOCHROMATOSIS
     Dosage: 100 MG, BID
     Route: 048
     Dates: start: 20150515

REACTIONS (1)
  - Death [Fatal]

NARRATIVE: CASE EVENT DATE: 20150730
